FAERS Safety Report 8173116-4 (Version None)
Quarter: 2012Q1

REPORT INFORMATION
  Report Type: 
  Country: None (occurrence: None)
  Receive Date: 20120229
  Receipt Date: 20120220
  Transmission Date: 20120608
  Serious: Yes (Life-Threatening, Hospitalization, Other)
  Sender: FDA-Public Use
  Company Number: GB-TEVA-324606ISR

PATIENT
  Age: 62 Year
  Sex: Female

DRUGS (3)
  1. ROSUVASTATIN [Concomitant]
  2. VALSARTAN [Concomitant]
  3. INDAPAMIDE [Suspect]
     Indication: HYPERTENSION
     Route: 048
     Dates: start: 20120125, end: 20120201

REACTIONS (3)
  - BLOOD SODIUM DECREASED [None]
  - CONVULSION [None]
  - CONFUSIONAL STATE [None]
